FAERS Safety Report 11007108 (Version 2)
Quarter: 2016Q2

REPORT INFORMATION
  Report Type: Spontaneous
  Country: US (occurrence: US)
  Receive Date: 20150409
  Receipt Date: 20160415
  Transmission Date: 20160815
  Serious: No
  Sender: FDA-Public Use
  Company Number: US-ALLERGAN-1501559US

PATIENT
  Age: 59 Year
  Sex: Female

DRUGS (4)
  1. ESTRADIOL. [Concomitant]
     Active Substance: ESTRADIOL
     Indication: PRODUCT USED FOR UNKNOWN INDICATION
     Dosage: UNK
  2. LATISSE [Suspect]
     Active Substance: BIMATOPROST
     Indication: GROWTH OF EYELASHES
     Dosage: UNK
     Route: 061
     Dates: start: 201501
  3. SYNTHROID [Concomitant]
     Active Substance: LEVOTHYROXINE SODIUM
     Indication: PRODUCT USED FOR UNKNOWN INDICATION
     Dosage: UNK
  4. NORCO [Concomitant]
     Active Substance: ACETAMINOPHEN\HYDROCODONE BITARTRATE
     Indication: PAIN
     Dosage: UNK

REACTIONS (12)
  - Eye complication associated with device [Not Recovered/Not Resolved]
  - Blepharal pigmentation [Not Recovered/Not Resolved]
  - Eyelid disorder [Unknown]
  - Skin warm [Unknown]
  - Eyelids pruritus [Unknown]
  - Blepharitis [Unknown]
  - Eyelid oedema [Not Recovered/Not Resolved]
  - Eyelid irritation [Unknown]
  - Adverse drug reaction [Unknown]
  - Hair growth abnormal [Unknown]
  - Eyelid pain [Not Recovered/Not Resolved]
  - Skin discolouration [Unknown]
